FAERS Safety Report 15472699 (Version 2)
Quarter: 2020Q4

REPORT INFORMATION
  Report Type: Other
  Country: PY (occurrence: PY)
  Receive Date: 20181008
  Receipt Date: 20201126
  Transmission Date: 20210113
  Serious: Yes (Death, Other)
  Sender: FDA-Public Use
  Company Number: PY-ROCHE-2195674

PATIENT

DRUGS (7)
  1. RITUXIMAB. [Suspect]
     Active Substance: RITUXIMAB
     Indication: RHEUMATIC DISORDER
     Route: 065
  2. INFLIXIMAB [Suspect]
     Active Substance: INFLIXIMAB
     Indication: RHEUMATIC DISORDER
     Route: 065
  3. TOCILIZUMAB. [Suspect]
     Active Substance: TOCILIZUMAB
     Indication: RHEUMATIC DISORDER
     Route: 065
  4. ETANERCEPT [Suspect]
     Active Substance: ETANERCEPT
     Indication: RHEUMATIC DISORDER
     Route: 065
  5. GOLIMUMAB [Suspect]
     Active Substance: GOLIMUMAB
     Indication: RHEUMATIC DISORDER
     Route: 065
  6. ABATACEPT [Suspect]
     Active Substance: ABATACEPT
     Indication: RHEUMATIC DISORDER
     Route: 065
  7. ADALIMUMAB [Suspect]
     Active Substance: ADALIMUMAB
     Indication: RHEUMATIC DISORDER
     Route: 065

REACTIONS (31)
  - Immune system disorder [Unknown]
  - Gastrointestinal carcinoma [Fatal]
  - Pneumonia [Fatal]
  - Pseudomonal sepsis [Fatal]
  - Tuberculosis [Unknown]
  - Gastrointestinal disorder [Unknown]
  - Nervous system disorder [Unknown]
  - Respiratory tract infection [Unknown]
  - Ill-defined disorder [Unknown]
  - Respiratory disorder [Unknown]
  - Endocrine disorder [Unknown]
  - Acute myocardial infarction [Fatal]
  - Skin disorder [Unknown]
  - Reproductive tract disorder [Unknown]
  - Metabolic disorder [Unknown]
  - Cerebrovascular accident [Fatal]
  - Hepatobiliary disease [Unknown]
  - Angiopathy [Unknown]
  - Mental disorder [Unknown]
  - Cardiac disorder [Unknown]
  - Ear disorder [Unknown]
  - Musculoskeletal disorder [Unknown]
  - Renal disorder [Unknown]
  - Urinary tract disorder [Unknown]
  - Breast cancer [Unknown]
  - Lung neoplasm malignant [Unknown]
  - Colon cancer [Unknown]
  - Infection [Unknown]
  - Eye disorder [Unknown]
  - Breast disorder [Unknown]
  - Inner ear disorder [Unknown]
